FAERS Safety Report 7550291-3 (Version None)
Quarter: 2011Q2

REPORT INFORMATION
  Report Type: 
  Country: None (occurrence: None)
  Receive Date: 20110615
  Receipt Date: 20110601
  Transmission Date: 20111010
  Serious: Yes (Hospitalization)
  Sender: FDA-Public Use
  Company Number: US-CELGENEUS-ABX52-10-0421

PATIENT
  Sex: Male
  Weight: 76.4 kg

DRUGS (4)
  1. ABRAXANE [Suspect]
     Dosage: 81 MILLIGRAM
     Route: 051
     Dates: start: 20100622, end: 20100727
  2. ABRAXANE [Suspect]
     Dosage: 200 MILLIGRAM
     Route: 051
     Dates: start: 20100907, end: 20100914
  3. CARBOPLATIN [Suspect]
     Dosage: 221 MILLIGRAM
     Route: 051
     Dates: start: 20100622, end: 20100727
  4. CARBOPLATIN [Suspect]
     Dosage: 780 MILLIGRAM
     Route: 051
     Dates: start: 20100907, end: 20100907

REACTIONS (6)
  - THROMBOCYTOPENIA [None]
  - PYREXIA [None]
  - ANAEMIA [None]
  - PAIN [None]
  - RADIATION OESOPHAGITIS [None]
  - NEUTROPHIL COUNT DECREASED [None]
